FAERS Safety Report 8343018 (Version 2)
Quarter: 2014Q2

REPORT INFORMATION
  Report Type: Spontaneous
  Country: CA (occurrence: CA)
  Receive Date: 20120119
  Receipt Date: 20140429
  Transmission Date: 20141212
  Serious: Yes (Hospitalization, Other)
  Sender: FDA-Public Use
  Company Number: CA-ELI_LILLY_AND_COMPANY-CA201201002310

PATIENT
  Age: 30 Year
  Sex: Male

DRUGS (3)
  1. CYMBALTA [Suspect]
     Indication: DEPRESSION
     Dosage: 60 MG, QD
     Route: 048
     Dates: start: 201104
  2. VALCYTE [Suspect]
     Indication: CHRONIC FATIGUE SYNDROME
     Dosage: 900 MG, QD
     Route: 048
     Dates: start: 201104, end: 20110902
  3. ATIVAN [Concomitant]
     Indication: PRODUCT USED FOR UNKNOWN INDICATION
     Dosage: UNK UNK, UNKNOWN
     Route: 065
     Dates: start: 201104

REACTIONS (9)
  - Condition aggravated [Unknown]
  - Depression [Unknown]
  - Psychotic disorder [Unknown]
  - Schizophrenia [Unknown]
  - Suicidal ideation [Unknown]
  - Generalised tonic-clonic seizure [Unknown]
  - Anxiety [Unknown]
  - Fatigue [Unknown]
  - Insomnia [Unknown]
